FAERS Safety Report 13928372 (Version 1)
Quarter: 2017Q3

REPORT INFORMATION
  Report Type: Spontaneous
  Country: US (occurrence: None)
  Receive Date: 20170831
  Receipt Date: 20170831
  Transmission Date: 20171127
  Serious: No
  Sender: FDA-Public Use
  Company Number: None

PATIENT
  Age: 63 Year
  Sex: Male

DRUGS (7)
  1. TEMOZOLOMIDE 180MG SANDOZ INC [Suspect]
     Active Substance: TEMOZOLOMIDE
     Indication: LUNG NEOPLASM MALIGNANT
     Dosage: FREQUENCY - DAYS 1-5 OF 28 DAY CYCLE
     Route: 048
     Dates: start: 20170630
  2. NORCO [Concomitant]
     Active Substance: ACETAMINOPHEN\HYDROCODONE BITARTRATE
  3. NYSTATIN. [Concomitant]
     Active Substance: NYSTATIN
  4. SENNA [Concomitant]
     Active Substance: SENNA LEAF\SENNOSIDES\SENNOSIDES A AND B
  5. TEMOZOLOMIDE 5MG SANDOZ INC. [Suspect]
     Active Substance: TEMOZOLOMIDE
  6. STOOL SOFTENER [Concomitant]
  7. MORPHINE [Concomitant]
     Active Substance: MORPHINE

REACTIONS (3)
  - Platelet count decreased [None]
  - Transfusion related complication [None]
  - Cardio-respiratory arrest [None]

NARRATIVE: CASE EVENT DATE: 20170830
